FAERS Safety Report 5428256-7 (Version None)
Quarter: 2007Q3

REPORT INFORMATION
  Report Type: 
  Country: None (occurrence: None)
  Receive Date: 20070731
  Receipt Date: 20070419
  Transmission Date: 20080115
  Serious: No
  Sender: FDA-Public Use
  Company Number: US200704004511

PATIENT
  Age: 45 Year
  Sex: Female

DRUGS (3)
  1. BYETTA [Suspect]
     Dosage: SUBCUTANEOUS
     Route: 058
  2. EXENATIDE UNK STRENGTH PEN, DISPOSABLE DEVICE (EXENATIDE PEN) PEN,DISP [Concomitant]
  3. PEN,DISPOSABLE [Concomitant]

REACTIONS (3)
  - ANOREXIA [None]
  - ENERGY INCREASED [None]
  - WEIGHT DECREASED [None]
